FAERS Safety Report 16185247 (Version 1)
Quarter: 2019Q2

REPORT INFORMATION
  Report Type: Spontaneous
  Country: US (occurrence: US)
  Receive Date: 20190411
  Receipt Date: 20190411
  Transmission Date: 20190711
  Serious: Yes (Hospitalization)
  Sender: FDA-Public Use
  Company Number: US-ABBVIE-19K-163-2737045-00

PATIENT
  Age: 78 Year
  Sex: Female

DRUGS (3)
  1. RITUXAN [Suspect]
     Active Substance: RITUXIMAB
     Indication: PRODUCT USED FOR UNKNOWN INDICATION
     Route: 048
  2. VENCLEXTA [Suspect]
     Active Substance: VENETOCLAX
     Indication: CHRONIC LYMPHOCYTIC LEUKAEMIA
     Dosage: STARTER PACK
     Route: 048
     Dates: start: 20181228, end: 201901
  3. VENCLEXTA [Suspect]
     Active Substance: VENETOCLAX
     Route: 048
     Dates: start: 201901

REACTIONS (8)
  - Vomiting [Unknown]
  - Sciatica [Unknown]
  - Dizziness [Unknown]
  - Fatigue [Unknown]
  - Nausea [Unknown]
  - Muscular weakness [Unknown]
  - Arthralgia [Unknown]
  - Diarrhoea [Unknown]

NARRATIVE: CASE EVENT DATE: 20190130
